FAERS Safety Report 4927919-7 (Version None)
Quarter: 2006Q1

REPORT INFORMATION
  Report Type: 
  Country: None (occurrence: None)
  Receive Date: 20060223
  Receipt Date: 20060213
  Transmission Date: 20060701
  Serious: Yes (Hospitalization)
  Sender: FDA-Public Use
  Company Number: HQWYE791714FEB06

PATIENT
  Age: 52 Year
  Sex: Female

DRUGS (1)
  1. EFECTIN (VENLAFAXINE HYDROCHLORIDE, UNSPEC) [Suspect]
     Dosage: ^APPROXIMATELY 11 PIECES^ OVERDOSE AMOUNT ORAL
     Route: 048
     Dates: start: 20060212, end: 20060212

REACTIONS (2)
  - OVERDOSE [None]
  - POISONING [None]
